FAERS Safety Report 7050491-5 (Version None)
Quarter: 2010Q4

REPORT INFORMATION
  Report Type: 
  Country: None (occurrence: None)
  Receive Date: 20101018
  Receipt Date: 20101005
  Transmission Date: 20110411
  Serious: Yes (Other)
  Sender: FDA-Public Use
  Company Number: CA-ELI_LILLY_AND_COMPANY-CA201010000755

PATIENT
  Sex: Female
  Weight: 59.41 kg

DRUGS (2)
  1. ZYPREXA [Suspect]
     Indication: SCHIZOAFFECTIVE DISORDER
     Dosage: UNK, UNKNOWN
     Route: 065
     Dates: start: 20011016
  2. ZYPREXA [Suspect]
     Dosage: 7.5 MG, UNKNOWN
     Route: 065
     Dates: start: 20051001

REACTIONS (3)
  - MENSTRUATION IRREGULAR [None]
  - RENAL FAILURE [None]
  - SEDATION [None]
